FAERS Safety Report 14241627 (Version 1)
Quarter: 2017Q4

REPORT INFORMATION
  Report Type: Spontaneous
  Country: TW (occurrence: TW)
  Receive Date: 20171201
  Receipt Date: 20171201
  Transmission Date: 20180321
  Serious: Yes (Hospitalization)
  Sender: FDA-Public Use
  Company Number: TW-ROCHE-2031352

PATIENT
  Sex: Female
  Weight: 52 kg

DRUGS (7)
  1. ALIMTA [Concomitant]
     Active Substance: PEMETREXED DISODIUM
     Dosage: UNCERTAINTY
     Route: 065
     Dates: start: 201705, end: 201707
  2. CRIZOTINIB [Concomitant]
     Active Substance: CRIZOTINIB
     Dosage: UNCERTAINTY
     Route: 065
     Dates: start: 201610, end: 201702
  3. CERITINIB [Concomitant]
     Active Substance: CERITINIB
     Route: 065
     Dates: start: 201702, end: 201705
  4. ALECENSA [Suspect]
     Active Substance: ALECTINIB HYDROCHLORIDE
     Indication: NON-SMALL CELL LUNG CANCER
     Route: 048
  5. CISPLATIN. [Concomitant]
     Active Substance: CISPLATIN
     Dosage: UNCERTAINTY
     Route: 065
     Dates: start: 201607, end: 201609
  6. TAXOTERE [Concomitant]
     Active Substance: DOCETAXEL
     Dosage: UNCERTAINTY
     Route: 065
     Dates: start: 201607, end: 201609
  7. CARBOPLATIN. [Concomitant]
     Active Substance: CARBOPLATIN
     Dosage: UNCERTAINTY
     Route: 065
     Dates: start: 201705, end: 201707

REACTIONS (1)
  - Pancreatitis [Not Recovered/Not Resolved]
